FAERS Safety Report 4710756-6 (Version None)
Quarter: 2005Q3

REPORT INFORMATION
  Report Type: 
  Country: None (occurrence: None)
  Receive Date: 20050707
  Receipt Date: 20050620
  Transmission Date: 20060218
  Serious: Yes (Life-Threatening, Hospitalization)
  Sender: FDA-Public Use
  Company Number: JP_050406288

PATIENT
  Age: 69 Year
  Sex: Female
  Weight: 44 kg

DRUGS (4)
  1. ZYPREXA [Suspect]
     Indication: SCHIZOPHRENIA
     Dosage: 25 MG DAY
     Dates: start: 20040819, end: 20040927
  2. HALOMONTH (HALOPERIDOL DECANOATE) [Concomitant]
  3. AKIRIDEN (BIPERIDEN HYDROCHLORIDE) [Concomitant]
  4. FLUNITRAZEPAM [Concomitant]

REACTIONS (4)
  - CHOKING [None]
  - PLEURISY [None]
  - PNEUMONIA ASPIRATION [None]
  - PYOTHORAX [None]
